FAERS Safety Report 5248626-X (Version None)
Quarter: 2007Q1

REPORT INFORMATION
  Report Type: 
  Country: None (occurrence: None)
  Receive Date: 20070222
  Receipt Date: 20070207
  Transmission Date: 20070707
  Serious: Yes (Other)
  Sender: FDA-Public Use
  Company Number: 2007-154258-NL

PATIENT
  Sex: Female

DRUGS (1)
  1. NUVARING [Suspect]
     Dosage: VAGINAL
     Route: 067

REACTIONS (2)
  - CONTRACEPTIVE DEVICE COMPLICATION [None]
  - STAPHYLOCOCCAL INFECTION [None]
